FAERS Safety Report 10572224 (Version 1)
Quarter: 2014Q4

REPORT INFORMATION
  Report Type: Spontaneous
  Country: US (occurrence: US)
  Receive Date: 20141108
  Receipt Date: 20141108
  Transmission Date: 20150529
  Serious: Yes (Other)
  Sender: FDA-Public Use
  Company Number: US-B.I. PHARMACEUTICALS,INC./RIDGEFIELD-2014-BI-52909BP

PATIENT
  Age: 75 Year
  Sex: Male
  Weight: 95.25 kg

DRUGS (6)
  1. LOVAZA [Concomitant]
     Active Substance: OMEGA-3-ACID ETHYL ESTERS
     Indication: BLOOD TRIGLYCERIDES INCREASED
     Dosage: 4 ANZ
     Route: 048
     Dates: start: 2007
  2. LANTUS SOLOSTAR [Concomitant]
     Active Substance: INSULIN GLARGINE
     Indication: DIABETES MELLITUS
     Dosage: STRENGTH: 60 UNITS; DAILY DOSE: 60 UNITS
     Route: 058
     Dates: start: 2007
  3. DIGOXIN. [Concomitant]
     Active Substance: DIGOXIN
     Indication: ATRIAL FIBRILLATION
     Dosage: 0.125 MG
     Route: 048
     Dates: start: 1988
  4. AGGRENOX [Suspect]
     Active Substance: ASPIRIN\DIPYRIDAMOLE
     Indication: CEREBROVASCULAR ACCIDENT PROPHYLAXIS
     Dosage: STRENGTH: 25 MG / 200 MG; DAILY DOSE: 50 MG/ 400 MG
     Route: 048
     Dates: start: 1999
  5. BUMETANIDE. [Concomitant]
     Active Substance: BUMETANIDE
     Indication: PROPHYLAXIS
     Dosage: 1 MG
     Route: 048
     Dates: start: 2004
  6. NOVOLOG [Concomitant]
     Active Substance: INSULIN ASPART
     Indication: DIABETES MELLITUS
     Dosage: DAILY DOSE: 20 TO 30 UNITS
     Route: 058
     Dates: start: 2007

REACTIONS (7)
  - Posture abnormal [Not Recovered/Not Resolved]
  - Dysarthria [Recovered/Resolved]
  - Road traffic accident [Recovered/Resolved]
  - Confusional state [Recovered/Resolved]
  - Transient ischaemic attack [Recovered/Resolved]
  - Ligament sprain [Not Recovered/Not Resolved]
  - Body height decreased [Not Recovered/Not Resolved]

NARRATIVE: CASE EVENT DATE: 20080423
